FAERS Safety Report 8499348-3 (Version None)
Quarter: 2012Q2

REPORT INFORMATION
  Report Type: 
  Country: None (occurrence: None)
  Receive Date: 20120615
  Receipt Date: 20120605
  Transmission Date: 20120825
  Serious: Yes (Other)
  Sender: FDA-Public Use
  Company Number: 2012030694

PATIENT
  Age: 25 Year
  Sex: Female

DRUGS (8)
  1. NEURONTIN [Concomitant]
  2. HYDROXYZINE [Concomitant]
  3. EPIPEN [Concomitant]
  4. CINRYZE [Suspect]
     Indication: HEREDITARY ANGIOEDEMA
  5. CORTEF [Concomitant]
  6. BERINERT [Suspect]
     Indication: HEREDITARY ANGIOEDEMA
     Dosage: INTRAVENOUS (NOT OTHERWISE SPECIFIED)
     Route: 042
     Dates: start: 20111201
  7. ASPIRIN [Concomitant]
  8. TYLENOL (PRACETAMOL) [Concomitant]

REACTIONS (5)
  - BLOOD PRESSURE INCREASED [None]
  - CONDITION AGGRAVATED [None]
  - HEREDITARY ANGIOEDEMA [None]
  - OSTEONECROSIS [None]
  - INFUSION SITE HAEMORRHAGE [None]
